FAERS Safety Report 9692304 (Version 2)
Quarter: 2014Q1

REPORT INFORMATION
  Report Type: Other
  Country: US (occurrence: US)
  Receive Date: 20131118
  Receipt Date: 20140124
  Transmission Date: 20141002
  Serious: Yes (Death, Other)
  Sender: FDA-Public Use
  Company Number: US-SHIRE-ALL1-2013-07804

PATIENT
  Age: 0 None
  Sex: Male

DRUGS (4)
  1. FIRAZYR [Suspect]
     Indication: EXPOSURE DURING PREGNANCY
     Dosage: UNK, UNKNOWN
     Route: 064
  2. LOVENOX [Concomitant]
     Indication: EXPOSURE DURING PREGNANCY
     Dosage: UNK, UNKNOWN
     Route: 064
  3. WELLBUTRIN [Concomitant]
     Indication: EXPOSURE DURING PREGNANCY
     Dosage: UNK, UNKNOWN
     Route: 064
  4. PRENATAL VITAMINS                  /02014401/ [Concomitant]
     Indication: EXPOSURE DURING PREGNANCY
     Dosage: UNK, UNKNOWN
     Route: 064

REACTIONS (3)
  - Aneurysm [Fatal]
  - Pulmonary embolism [Fatal]
  - Premature baby [Not Recovered/Not Resolved]
